FAERS Safety Report 5782668-0 (Version None)
Quarter: 2008Q2

REPORT INFORMATION
  Report Type: 
  Country: None (occurrence: None)
  Receive Date: 20080624
  Receipt Date: 20080613
  Transmission Date: 20081010
  Serious: Yes (Other)
  Sender: FDA-Public Use
  Company Number: US-RANBAXY-2008RR-16004

PATIENT

DRUGS (9)
  1. GABAPENTIN [Suspect]
     Indication: NERVE INJURY
     Dosage: 100 MG, UNK
     Route: 048
     Dates: start: 20040801, end: 20041001
  2. GABAPENTIN [Suspect]
     Dosage: 300 MG, UNK
     Route: 048
  3. GABAPENTIN [Suspect]
     Dosage: 400 MG, UNK
     Route: 048
  4. GABAPENTIN [Suspect]
     Dosage: 600 MG, UNK
     Route: 048
  5. GABAPENTIN [Suspect]
     Dosage: 800 MG, UNK
     Route: 048
  6. LYRICA [Suspect]
     Indication: NERVE INJURY
     Dosage: UNK MG, TID
  7. PERCOCET [Suspect]
     Indication: DRUG USE FOR UNKNOWN INDICATION
     Route: 048
  8. EFFEXOR [Concomitant]
     Indication: DEPRESSION
     Dosage: UNK
     Dates: start: 20060101
  9. NEURONTIN [Concomitant]
     Indication: NEURALGIA
     Dosage: UNK
     Dates: end: 20071127

REACTIONS (11)
  - CONFUSIONAL STATE [None]
  - DEPRESSION [None]
  - DRUG DEPENDENCE [None]
  - DRUG INEFFECTIVE [None]
  - DRUG INTOLERANCE [None]
  - FEELING ABNORMAL [None]
  - MEMORY IMPAIRMENT [None]
  - MENTAL IMPAIRMENT [None]
  - MULTIPLE SCLEROSIS [None]
  - PRECANCEROUS CELLS PRESENT [None]
  - WEIGHT INCREASED [None]
